FAERS Safety Report 5380638-8 (Version None)
Quarter: 2007Q2

REPORT INFORMATION
  Report Type: 
  Country: None (occurrence: None)
  Receive Date: 20070530
  Receipt Date: 20070308
  Transmission Date: 20071010
  Serious: No
  Sender: FDA-Public Use
  Company Number: 2007PV031391

PATIENT
  Age: 52 Year
  Sex: Male
  Weight: 185.9748 kg

DRUGS (7)
  1. BYETTA [Suspect]
     Indication: DIABETES MELLITUS NON-INSULIN-DEPENDENT
     Dosage: 10  MCG; BID;SC; 5 MCG;BID;SC
     Route: 058
     Dates: start: 20070201, end: 20070201
  2. BYETTA [Suspect]
     Indication: DIABETES MELLITUS NON-INSULIN-DEPENDENT
     Dosage: 10  MCG; BID;SC; 5 MCG;BID;SC
     Route: 058
     Dates: start: 20070201
  3. METFORMIN HCL [Concomitant]
  4. GLIPIZIDE [Concomitant]
  5. AVANDIA [Concomitant]
  6. CYMBALTA [Concomitant]
  7. LYRICA [Concomitant]

REACTIONS (5)
  - BLOOD GLUCOSE INCREASED [None]
  - DECREASED APPETITE [None]
  - DRUG INEFFECTIVE [None]
  - MALAISE [None]
  - POOR QUALITY SLEEP [None]
